FAERS Safety Report 7103077-8 (Version None)
Quarter: 2010Q4

REPORT INFORMATION
  Report Type: 
  Country: None (occurrence: None)
  Receive Date: 20101108
  Receipt Date: 20101027
  Transmission Date: 20110411
  Serious: Yes (Hospitalization)
  Sender: FDA-Public Use
  Company Number: 2010-1880

PATIENT
  Age: 59 Year
  Sex: Female
  Weight: 49 kg

DRUGS (19)
  1. SOMATULINE DEPOT [Suspect]
     Indication: ACROMEGALY
     Dosage: 60MG (60 MG, 1 IN 28 D), SUBCUTANEOUS
     Route: 058
     Dates: start: 20100519
  2. NAMENDA [Suspect]
     Indication: MIGRAINE
     Dosage: 5 MG (5 MG, 1 IN 1 D),; 20 MG, (10 MG, 2 IN 1 D),; 30 MG (15 MG, 2 IN 1 D),
     Dates: start: 20100501
  3. NEXIUM [Concomitant]
  4. RANITIDINE [Concomitant]
  5. WELCHOL [Concomitant]
  6. LIPITOR [Concomitant]
  7. TRAZEDONE (TRAZODONE) [Concomitant]
  8. LEXAPRO [Concomitant]
  9. PREMPRO (PROVELLA-14) [Concomitant]
  10. VITAMIN D [Concomitant]
  11. CALCIUM (CALCIUM) [Concomitant]
  12. MEGASTROL (MEGESTROL) [Concomitant]
  13. LISINOPRIL [Concomitant]
  14. MULTIVITAMIN (MULTIVITAMIN /00831701/) [Concomitant]
  15. TOPAMAX [Concomitant]
  16. PLAVIX [Concomitant]
  17. ASPIRIN [Concomitant]
  18. BUPROPION SR (BUPROPION) [Concomitant]
  19. MIRALAX [Concomitant]

REACTIONS (12)
  - ABDOMINAL PAIN UPPER [None]
  - BLOOD GLUCOSE INCREASED [None]
  - CONCUSSION [None]
  - FALL [None]
  - HAEMORRHAGE [None]
  - INJECTION SITE NODULE [None]
  - PAIN [None]
  - PRURITUS [None]
  - REGURGITATION [None]
  - URTICARIA [None]
  - VERTIGO [None]
  - WRONG TECHNIQUE IN DRUG USAGE PROCESS [None]
